FAERS Safety Report 8911116 (Version 2)
Quarter: 2012Q4

REPORT INFORMATION
  Report Type: 
  Country: GR (occurrence: GR)
  Receive Date: 20121116
  Receipt Date: 20121206
  Transmission Date: 20130627
  Serious: Yes (Hospitalization)
  Sender: FDA-Public Use
  Company Number: GR-AMGEN-GRCSP2012072640

PATIENT
  Age: 74 Year
  Sex: Male

DRUGS (2)
  1. PROLIA [Suspect]
     Indication: PROPHYLAXIS
     Dosage: 60 mg, q6mo
     Dates: start: 201208
  2. AZATHIOPRIN [Concomitant]
     Dosage: 50 mg, qd
     Route: 042

REACTIONS (1)
  - Urinary tract infection [Recovered/Resolved]
